FAERS Safety Report 5628009-0 (Version None)
Quarter: 2008Q1

REPORT INFORMATION
  Report Type: 
  Country: None (occurrence: None)
  Receive Date: 20080215
  Receipt Date: 20080201
  Transmission Date: 20080703
  Serious: Yes (Disabling)
  Sender: FDA-Public Use
  Company Number: GB-RANBAXY-2008RR-12889

PATIENT

DRUGS (10)
  1. ATENOLOL TABLETS BP 100MG [Suspect]
     Dosage: 75 MG, UNK
  2. LANTUS [Suspect]
     Dosage: UNK
     Route: 058
     Dates: start: 20070901, end: 20071001
  3. AMLODIPINE [Concomitant]
     Dosage: 10 MG, UNK
  4. ASPIRIN [Concomitant]
     Dosage: 75 MG, UNK
  5. ATORVASTATIN CALCIUM [Concomitant]
     Dosage: 20 MG, UNK
  6. CLOPIDOGREL [Concomitant]
  7. HUMALOG [Concomitant]
     Dosage: 38 IU, UNK
     Route: 058
  8. IVABRADINE [Concomitant]
     Dosage: 10 MG, UNK
  9. NICORANDIL [Concomitant]
     Dosage: 40 MG, UNK
  10. TRANDOLAPRIL [Concomitant]

REACTIONS (5)
  - ERYTHEMA [None]
  - IMPAIRED HEALING [None]
  - ITCHING SCAR [None]
  - PRURITUS [None]
  - URTICARIA [None]
